APPROVED DRUG PRODUCT: HYDROMORPHONE HYDROCHLORIDE
Active Ingredient: HYDROMORPHONE HYDROCHLORIDE
Strength: 8MG
Dosage Form/Route: TABLET;ORAL
Application: A074597 | Product #001
Applicant: HIKMA PHARMACEUTICALS USA INC
Approved: Jul 29, 1998 | RLD: No | RS: No | Type: DISCN